FAERS Safety Report 7823958-7 (Version None)
Quarter: 2011Q4

REPORT INFORMATION
  Report Type: 
  Country: None (occurrence: None)
  Receive Date: 20111019
  Receipt Date: 20111011
  Transmission Date: 20120403
  Serious: Yes (Hospitalization)
  Sender: FDA-Public Use
  Company Number: FR-JNJFOC-20111004728

PATIENT
  Age: 58 Year
  Sex: Female

DRUGS (23)
  1. GLUCOPHAGE [Suspect]
     Route: 048
     Dates: start: 20110812
  2. GLUCOPHAGE [Suspect]
     Route: 048
  3. ESOMEPRAZOLE SODIUM [Concomitant]
     Route: 065
  4. AMLODIPINE BESYLATE [Concomitant]
     Route: 065
  5. ACETAMINOPHEN [Concomitant]
     Route: 065
  6. TRAMADOL HCL [Concomitant]
     Route: 065
  7. CEFTRIAXONE [Suspect]
     Indication: SYPHILITIC ENDOCARDITIS OF HEART VALVE
     Route: 042
     Dates: start: 20110805, end: 20110901
  8. LEVOFLOXACIN [Suspect]
     Indication: PSOAS ABSCESS
     Route: 048
     Dates: start: 20110812
  9. LEVOFLOXACIN [Suspect]
     Indication: SYPHILITIC ENDOCARDITIS OF HEART VALVE
     Route: 048
     Dates: start: 20110812
  10. FUROSEMIDE [Concomitant]
     Route: 065
  11. METRONIDAZOLE [Concomitant]
     Route: 065
     Dates: start: 20110805
  12. PROPRANOLOL [Concomitant]
     Route: 065
  13. JANUVIA [Suspect]
     Indication: DIABETES MELLITUS
     Route: 048
     Dates: start: 20110809, end: 20110812
  14. ALLOPURINOL [Concomitant]
     Route: 065
  15. CEFTRIAXONE [Suspect]
     Indication: SEPSIS
     Route: 042
     Dates: start: 20110805, end: 20110901
  16. ARCOXIA [Concomitant]
     Route: 065
  17. POTASSIUM CHLORIDE [Concomitant]
     Route: 065
  18. ESCITALOPRAM OXALATE [Concomitant]
     Route: 065
  19. CRESTOR [Concomitant]
     Route: 065
  20. LEVOFLOXACIN [Suspect]
     Indication: SEPSIS
     Route: 048
     Dates: start: 20110812
  21. GLUCOPHAGE [Suspect]
     Indication: DIABETES MELLITUS
     Route: 048
     Dates: start: 20110809, end: 20110811
  22. CEFTRIAXONE [Suspect]
     Indication: PSOAS ABSCESS
     Route: 042
     Dates: start: 20110805, end: 20110901
  23. ALDACTONE [Concomitant]
     Route: 065

REACTIONS (4)
  - HYPERHIDROSIS [None]
  - ALTERED STATE OF CONSCIOUSNESS [None]
  - ENCEPHALOPATHY [None]
  - SOMNOLENCE [None]
